FAERS Safety Report 5341900-8 (Version None)
Quarter: 2007Q2

REPORT INFORMATION
  Report Type: 
  Country: None (occurrence: None)
  Receive Date: 20070601
  Receipt Date: 20070521
  Transmission Date: 20071010
  Serious: Yes (Hospitalization, Other)
  Sender: FDA-Public Use
  Company Number: US-ELI_LILLY_AND_COMPANY-US200705001377

PATIENT
  Age: 82 Year
  Sex: Female
  Weight: 46.802 kg

DRUGS (4)
  1. FORTEO [Suspect]
     Indication: OSTEOPOROSIS
     Dosage: 20 UG, UNK
     Dates: start: 20060301
  2. METHOTREXATE SODIUM [Concomitant]
  3. VITAMIN D [Concomitant]
  4. CALCIUM CHLORIDE [Concomitant]

REACTIONS (2)
  - AORTIC ANEURYSM [None]
  - ARTHRALGIA [None]
